FAERS Safety Report 15356310 (Version 1)
Quarter: 2018Q3

REPORT INFORMATION
  Report Type: Spontaneous
  Country: US (occurrence: US)
  Receive Date: 20180830
  Receipt Date: 20180830
  Transmission Date: 20181010
  Serious: No
  Sender: FDA-Public Use
  Company Number: None

PATIENT
  Age: 64 Year
  Sex: Female

DRUGS (2)
  1. IBRANCE [Suspect]
     Active Substance: PALBOCICLIB
     Route: 048
     Dates: start: 20180812
  2. LETRAZOLE [Concomitant]
     Active Substance: LETROZOLE

REACTIONS (5)
  - Oropharyngeal pain [None]
  - Chronic obstructive pulmonary disease [None]
  - Nasopharyngitis [None]
  - Metastases to lung [None]
  - Metastases to bone [None]

NARRATIVE: CASE EVENT DATE: 20180829
